FAERS Safety Report 8267888-8 (Version None)
Quarter: 2012Q2

REPORT INFORMATION
  Report Type: 
  Country: None (occurrence: None)
  Receive Date: 20120409
  Receipt Date: 20120404
  Transmission Date: 20120825
  Serious: Yes (Life-Threatening, Hospitalization)
  Sender: FDA-Public Use
  Company Number: GB-ASTRAZENECA-2012SE17389

PATIENT
  Age: 62 Year
  Sex: Female

DRUGS (15)
  1. DOCUSATE SODIUM [Concomitant]
  2. MORPHINE SULFATE [Concomitant]
  3. LEVOTHYROXINE SODIUM [Concomitant]
  4. TIOTROPIUM BROMIDE [Concomitant]
  5. CYCLIZINE [Concomitant]
  6. FLUTICASONE PROPIONATE/SALMETEROL [Concomitant]
  7. SODIUM ALGINATE [Concomitant]
  8. GLICLAZIDE [Concomitant]
  9. ACETAMINOPHEN [Concomitant]
  10. PRAVASTATIN [Concomitant]
  11. ALBUTEROL [Concomitant]
  12. CITALOPRAM HYDROBROMIDE [Concomitant]
  13. LISINOPRIL [Suspect]
     Indication: HYPERTENSION
     Route: 048
     Dates: start: 20100806, end: 20120229
  14. METOCLOPRAMIDE [Concomitant]
  15. OMEPRAZOLE [Concomitant]

REACTIONS (6)
  - PALLOR [None]
  - WHEEZING [None]
  - C-REACTIVE PROTEIN INCREASED [None]
  - ANGIOEDEMA [None]
  - TONGUE OEDEMA [None]
  - DYSPNOEA [None]
